FAERS Safety Report 4693460-2 (Version None)
Quarter: 2005Q2

REPORT INFORMATION
  Report Type: 
  Country: None (occurrence: None)
  Receive Date: 20050615
  Receipt Date: 20050602
  Transmission Date: 20051028
  Serious: Yes (Other)
  Sender: FDA-Public Use
  Company Number: 2005083691

PATIENT
  Age: 59 Year
  Sex: Male
  Weight: 80.7403 kg

DRUGS (15)
  1. VIAGRA [Suspect]
     Indication: ERECTILE DYSFUNCTION
     Dosage: 100 MG, AS NECESSARY, ORAL
     Route: 048
  2. VIAGRA [Suspect]
     Indication: ILL-DEFINED DISORDER
     Dosage: 100 MG, AS NECESSARY, ORAL
     Route: 048
  3. NIASPAN [Suspect]
     Indication: ILL-DEFINED DISORDER
     Dosage: ORAL
     Route: 048
     Dates: start: 20050201, end: 20050401
  4. YOHIMBINE (YOHIMBINE) [Concomitant]
  5. LANTUS [Concomitant]
  6. NOVOLOG [Concomitant]
  7. AVAPRO [Concomitant]
  8. ALTACE [Concomitant]
  9. COREG [Concomitant]
  10. ASPIRIN [Concomitant]
  11. TYLENOL PM (DIPHENHYDRAMINE, PARACETAMOL) [Concomitant]
  12. VITAMIN E [Concomitant]
  13. VITAMIN C (VITAMIN C) [Concomitant]
  14. FISH OIL (FISH OIL) [Concomitant]
  15. GENERAL NUTRIENTS (GENERAL NUTRIENTS) [Concomitant]

REACTIONS (4)
  - BLOOD GLUCOSE ABNORMAL [None]
  - DRUG INEFFECTIVE [None]
  - MALIGNANT MELANOMA [None]
  - THERAPEUTIC RESPONSE UNEXPECTED [None]
